FAERS Safety Report 25955518 (Version 1)
Quarter: 2025Q4

REPORT INFORMATION
  Report Type: Spontaneous
  Country: EU (occurrence: EU)
  Receive Date: 20251024
  Receipt Date: 20251024
  Transmission Date: 20260118
  Serious: Yes (Other)
  Sender: CELLTRION
  Company Number: EU-AMGEN-ITASP2025201111

PATIENT

DRUGS (5)
  1. ADALIMUMAB [Suspect]
     Active Substance: ADALIMUMAB
     Indication: Crohn^s disease
     Dosage: UNK
     Route: 058
  2. ADALIMUMAB [Suspect]
     Active Substance: ADALIMUMAB
  3. AZATHIOPRINE [Concomitant]
     Active Substance: AZATHIOPRINE
     Indication: Crohn^s disease
     Dosage: 1 MILLIGRAM/KILOGRAM, QD
     Route: 065
  4. AZATHIOPRINE [Concomitant]
     Active Substance: AZATHIOPRINE
     Dosage: 100 MILLIGRAM, QD
     Route: 065
  5. AZATHIOPRINE [Concomitant]
     Active Substance: AZATHIOPRINE
     Dosage: 150 MILLIGRAM, QD
     Route: 065

REACTIONS (1)
  - Central nervous system vasculitis [Unknown]
